FAERS Safety Report 5188594-2 (Version None)
Quarter: 2006Q4

REPORT INFORMATION
  Report Type: 
  Country: None (occurrence: None)
  Receive Date: 20061221
  Receipt Date: 20061214
  Transmission Date: 20070319
  Serious: Yes (Other)
  Sender: FDA-Public Use
  Company Number: US-ELI_LILLY_AND_COMPANY-US200612002789

PATIENT
  Sex: Male

DRUGS (1)
  1. XIGRIS [Suspect]
     Route: 042
     Dates: start: 20060101

REACTIONS (6)
  - ACUTE RESPIRATORY DISTRESS SYNDROME [None]
  - ATRIAL FIBRILLATION [None]
  - OXYGEN SATURATION ABNORMAL [None]
  - RENAL IMPAIRMENT [None]
  - SYSTEMIC INFLAMMATORY RESPONSE SYNDROME [None]
  - WHITE BLOOD CELL COUNT ABNORMAL [None]
